FAERS Safety Report 7537667-5 (Version None)
Quarter: 2011Q2

REPORT INFORMATION
  Report Type: 
  Country: None (occurrence: None)
  Receive Date: 20110609
  Receipt Date: 20071002
  Transmission Date: 20111010
  Serious: Yes (Death)
  Sender: FDA-Public Use
  Company Number: PHNR2007AU01342

PATIENT
  Sex: Female

DRUGS (10)
  1. CLOZAPINE [Suspect]
     Dosage: 150 MG -  900 MG DAILY
     Route: 048
     Dates: start: 19950301
  2. DIAMICRON MR [Concomitant]
     Dosage: 90 MG, MANE
  3. ASPIRIN [Concomitant]
     Dosage: 100 MG, MANE
  4. METFORMIN HCL [Concomitant]
     Dosage: 1 G, TID
  5. ATORVASTATIN [Concomitant]
     Dosage: 80 MG, NOCTE
  6. CLOZAPINE [Suspect]
     Indication: SCHIZOPHRENIA
     Dosage: 125 MG - 400 MG DAILY
     Route: 048
     Dates: start: 19941214, end: 19950127
  7. RANI 2 [Concomitant]
     Dosage: 150 MG, BID
  8. RISPERIDONE [Concomitant]
     Dosage: 2.5MG MANE, 4.5MG NOCTE
  9. ALLOPURINOL [Concomitant]
     Dosage: 300 MG, QD
  10. PERINDOPRIL ERBUMINE [Concomitant]
     Dosage: 2.5 MG, NOCTE

REACTIONS (1)
  - DEATH [None]
